FAERS Safety Report 4589443-3 (Version None)
Quarter: 2005Q1

REPORT INFORMATION
  Report Type: 
  Country: None (occurrence: None)
  Receive Date: 20050216
  Receipt Date: 20041214
  Transmission Date: 20050727
  Serious: Yes (Life-Threatening)
  Sender: FDA-Public Use
  Company Number: 2004116970

PATIENT
  Age: 47 Year
  Sex: Female
  Weight: 60 kg

DRUGS (3)
  1. CELEBREX [Suspect]
     Indication: PREOPERATIVE CARE
     Dosage: 200 MG (200 MG, 1 IN 1 D), ORAL
     Route: 048
     Dates: start: 20041202, end: 20041202
  2. PARECOXIB SODIUM [Suspect]
     Indication: POST PROCEDURAL PAIN
     Dosage: 40 MG (40 MG, 1 IN 1 D), INTRAVENOUS
     Route: 042
     Dates: start: 20041202, end: 20041202
  3. CEFAZOLIN [Concomitant]

REACTIONS (1)
  - OPERATIVE HAEMORRHAGE [None]
